FAERS Safety Report 23207114 (Version 1)
Quarter: 2023Q4

REPORT INFORMATION
  Report Type: Spontaneous
  Country: CN (occurrence: CN)
  Receive Date: 20231120
  Receipt Date: 20231120
  Transmission Date: 20240110
  Serious: Yes (Hospitalization)
  Sender: FDA-Public Use
  Company Number: CN-ELI_LILLY_AND_COMPANY-CN202311008315

PATIENT
  Age: 18 Year
  Sex: Female
  Weight: 38 kg

DRUGS (2)
  1. FLUOXETINE HYDROCHLORIDE [Suspect]
     Active Substance: FLUOXETINE HYDROCHLORIDE
     Indication: Anorexia nervosa
     Dosage: 60 MG, DAILY
     Route: 048
     Dates: start: 20230828, end: 20231028
  2. LORAZEPAM [Suspect]
     Active Substance: LORAZEPAM
     Indication: Anorexia nervosa
     Dosage: 2 MG, EACH EVENING
     Route: 048
     Dates: start: 20230828, end: 20231028

REACTIONS (2)
  - Liver injury [Unknown]
  - Off label use [Unknown]

NARRATIVE: CASE EVENT DATE: 20230828
